FAERS Safety Report 4523310-6 (Version None)
Quarter: 2004Q4

REPORT INFORMATION
  Report Type: 
  Country: None (occurrence: None)
  Receive Date: 20041210
  Receipt Date: 20041201
  Transmission Date: 20050328
  Serious: Yes (Other)
  Sender: FDA-Public Use
  Company Number: JP-JNJFOC-20041105881

PATIENT
  Age: 82 Year
  Sex: Female

DRUGS (4)
  1. TAVANIC [Suspect]
     Indication: RELAPSING FEVER
     Route: 049
     Dates: start: 20041011, end: 20041015
  2. SUGUAN M [Concomitant]
     Route: 049
     Dates: start: 20041011, end: 20041015
  3. SUGUAN M [Concomitant]
     Route: 049
     Dates: start: 20041011, end: 20041015
  4. PROPAPHENONE [Concomitant]
     Route: 049
     Dates: start: 20041011, end: 20041015

REACTIONS (1)
  - HEPATITIS CHOLESTATIC [None]
